FAERS Safety Report 5688481-7 (Version None)
Quarter: 2008Q1

REPORT INFORMATION
  Report Type: 
  Country: None (occurrence: None)
  Receive Date: 20080331
  Receipt Date: 20080318
  Transmission Date: 20080703
  Serious: Yes (Hospitalization, Other)
  Sender: FDA-Public Use
  Company Number: BR-ELI_LILLY_AND_COMPANY-BR200803004271

PATIENT
  Age: 60 Year
  Sex: Female
  Weight: 75 kg

DRUGS (3)
  1. ZYPREXA [Suspect]
     Indication: DEPRESSION
     Dosage: 10 MG, DAILY (1/D)
     Route: 048
     Dates: start: 20080310, end: 20080316
  2. CARBOLITIUM [Concomitant]
     Dosage: UNK, UNKNOWN
     Route: 065
  3. FLUOXETINA [Concomitant]
     Dosage: UNK, UNKNOWN
     Route: 065

REACTIONS (8)
  - BLOOD GLUCOSE INCREASED [None]
  - BLOOD PRESSURE INCREASED [None]
  - CONVULSION [None]
  - HAEMATOMA [None]
  - INCREASED APPETITE [None]
  - LEUKOPENIA [None]
  - MOVEMENT DISORDER [None]
  - YELLOW SKIN [None]
